FAERS Safety Report 5507763-2 (Version None)
Quarter: 2007Q4

REPORT INFORMATION
  Report Type: 
  Country: None (occurrence: None)
  Receive Date: 20071102
  Receipt Date: 20071024
  Transmission Date: 20080405
  Serious: Yes (Disabling, Other)
  Sender: FDA-Public Use
  Company Number: GXKR2007GB09178

PATIENT
  Age: 58 Year
  Sex: Male

DRUGS (9)
  1. CITALOPRAM HYDROBROMIDE [Suspect]
     Dosage: 20 MG, QD, ORAL
     Route: 048
     Dates: start: 20070927, end: 20071011
  2. AMITRIPTYLINE HCL [Concomitant]
  3. ATORVASTATIN CALCIUM [Concomitant]
  4. CODEINE SUL TAB [Concomitant]
  5. CO-DYDRAMOL (DIHYROCHODEINE BITARTRATE, PARACETAMOL) [Concomitant]
  6. DICLOFENAC (DICLOFENAC) [Concomitant]
  7. FYBOGEL (ISPAGHULA, PLANTAGO OVATA) [Concomitant]
  8. SENNA (SENNA, SENNA ALEXANDRINA) [Concomitant]
  9. SILDENAFIL CITRATE [Concomitant]

REACTIONS (7)
  - BINGE EATING [None]
  - DEPRESSED LEVEL OF CONSCIOUSNESS [None]
  - DEPRESSION [None]
  - FEELING ABNORMAL [None]
  - INSOMNIA [None]
  - MENTAL DISORDER [None]
  - MOOD ALTERED [None]
